FAERS Safety Report 19495069 (Version 1)
Quarter: 2021Q3

REPORT INFORMATION
  Report Type: Spontaneous
  Country: ES (occurrence: ES)
  Receive Date: 20210705
  Receipt Date: 20210705
  Transmission Date: 20211014
  Serious: Yes (Death)
  Sender: FDA-Public Use
  Company Number: ES-ROCHE-2863485

PATIENT
  Age: 64 Year
  Sex: Male
  Weight: 108 kg

DRUGS (7)
  1. HIDROFEROL [Concomitant]
     Active Substance: CALCIFEDIOL
  2. COMIRNATY [Suspect]
     Active Substance: TOZINAMERAN
     Indication: COVID-19 IMMUNISATION
     Dosage: CONCENTRATE FOR INJECTABLE DISPERSION, 195 VIALS (MULTIDOSE)
     Route: 065
     Dates: start: 20210511, end: 20210511
  3. ZYLORIC [Concomitant]
     Active Substance: ALLOPURINOL
     Indication: HYPERURICAEMIA
  4. COMIRNATY [Suspect]
     Active Substance: TOZINAMERAN
     Route: 065
     Dates: start: 20210420, end: 20210420
  5. TECENTRIQ [Suspect]
     Active Substance: ATEZOLIZUMAB
     Indication: TRANSITIONAL CELL CARCINOMA
     Route: 041
     Dates: start: 20191007, end: 20210510
  6. EUCREAS [Concomitant]
     Active Substance: METFORMIN HYDROCHLORIDE\VILDAGLIPTIN
     Indication: TYPE 2 DIABETES MELLITUS
  7. DIOVAN [Concomitant]
     Active Substance: VALSARTAN
     Indication: HYPERTENSION

REACTIONS (2)
  - Immune-mediated myocarditis [Fatal]
  - Immune-mediated myositis [Fatal]

NARRATIVE: CASE EVENT DATE: 202105
